FAERS Safety Report 20021885 (Version 1)
Quarter: 2021Q4

REPORT INFORMATION
  Report Type: Spontaneous
  Country: US (occurrence: US)
  Receive Date: 20211102
  Receipt Date: 20211102
  Transmission Date: 20220304
  Serious: No
  Sender: FDA-Public Use
  Company Number: US-BIOVITRUM-2021US8335

PATIENT
  Age: 73 Year
  Sex: Female

DRUGS (2)
  1. KINERET [Suspect]
     Active Substance: ANAKINRA
     Indication: Familial amyloidosis
     Dosage: 100MG/.67ML
     Route: 058
     Dates: start: 20190612
  2. KINERET [Suspect]
     Active Substance: ANAKINRA
     Indication: Arthritis

REACTIONS (5)
  - Migraine [Unknown]
  - Ocular hyperaemia [Unknown]
  - Peripheral swelling [Unknown]
  - Accidental overdose [Unknown]
  - Off label use [Unknown]

NARRATIVE: CASE EVENT DATE: 20190612
